FAERS Safety Report 22236865 (Version 2)
Quarter: 2024Q3

REPORT INFORMATION
  Report Type: Spontaneous
  Country: DK (occurrence: DK)
  Receive Date: 20230420
  Receipt Date: 20240905
  Transmission Date: 20241017
  Serious: Yes (Other)
  Sender: CELLTRION
  Company Number: DK-CELLTRION INC.-2022DK022340

PATIENT

DRUGS (2)
  1. INFLIXIMAB [Suspect]
     Active Substance: INFLIXIMAB
     Indication: Enterocolitis
     Dosage: UNKNOWN, 5 OR 10 MG/KG, ADDITIONAL INFORMATION ON DRUG (CODED): OFF LABEL USE
     Route: 065
  2. PREDNISOLONE [Suspect]
     Active Substance: PREDNISOLONE
     Indication: Immune-mediated enterocolitis
     Dosage: UNKNOWN
     Route: 065

REACTIONS (4)
  - Embolism [Unknown]
  - Colitis ulcerative [Unknown]
  - Orchitis [Unknown]
  - Off label use [Unknown]
